FAERS Safety Report 6962651-X (Version None)
Quarter: 2010Q3

REPORT INFORMATION
  Report Type: 
  Country: None (occurrence: None)
  Receive Date: 20100902
  Receipt Date: 20100901
  Transmission Date: 20110219
  Serious: Yes (Other)
  Sender: FDA-Public Use
  Company Number: JP-SP-2010-04150

PATIENT
  Age: 59 Year
  Sex: Male

DRUGS (1)
  1. BCG  THERAPEUTICS [Suspect]
     Indication: MALIGNANT NEOPLASM OF RENAL PELVIS
     Route: 050
     Dates: start: 20060601, end: 20081001

REACTIONS (3)
  - GRANULOMA [None]
  - OFF LABEL USE [None]
  - RENAL TUBERCULOSIS [None]
